FAERS Safety Report 25595686 (Version 1)
Quarter: 2025Q3

REPORT INFORMATION
  Report Type: Spontaneous
  Country: EU (occurrence: EU)
  Receive Date: 20250723
  Receipt Date: 20250723
  Transmission Date: 20251021
  Serious: Yes (Hospitalization)
  Sender: Long Grove Pharmaceuticals
  Company Number: EU-Long Grove-000119

PATIENT
  Age: 48 Year
  Sex: Male

DRUGS (1)
  1. METHADONE [Suspect]
     Active Substance: METHADONE HYDROCHLORIDE
     Indication: Drug dependence

REACTIONS (4)
  - Hyperthermia [Unknown]
  - Myalgia [Unknown]
  - Somnolence [Unknown]
  - Hyperaesthesia [Unknown]
